FAERS Safety Report 8187522-5 (Version None)
Quarter: 2012Q1

REPORT INFORMATION
  Report Type: 
  Country: None (occurrence: None)
  Receive Date: 20120302
  Receipt Date: 20120220
  Transmission Date: 20120608
  Serious: Yes (Hospitalization)
  Sender: FDA-Public Use
  Company Number: 2011P1010053

PATIENT
  Age: 72 Year
  Sex: Female

DRUGS (6)
  1. LOXONIN (NO PREF. NAME) [Suspect]
     Indication: JOINT SWELLING
     Dosage: PO
     Route: 048
     Dates: start: 20110509, end: 20110511
  2. BIOFERMIN (NO PREF. NAME) [Suspect]
     Indication: DIARRHOEA
     Dosage: PO
     Route: 048
     Dates: start: 20110507, end: 20110508
  3. LOPERAMIDE HCL [Suspect]
     Indication: DIARRHOEA
     Dosage: PO
     Route: 048
     Dates: start: 20110507, end: 20110508
  4. PEPCID [Suspect]
     Indication: DIARRHOEA
     Dosage: PO
     Route: 048
     Dates: start: 20110507, end: 20110508
  5. GASLON N (NO PREF. NAME) [Suspect]
     Indication: JOINT SWELLING
     Dosage: PO
     Route: 048
     Dates: start: 20110509, end: 20110511
  6. FOSMICIN (NO PREF. NAME) [Suspect]
     Indication: DIARRHOEA
     Dosage: PO
     Route: 048
     Dates: start: 20110507, end: 20110508

REACTIONS (3)
  - PYREXIA [None]
  - HEPATIC FUNCTION ABNORMAL [None]
  - DRUG ERUPTION [None]
